FAERS Safety Report 19752988 (Version 1)
Quarter: 2021Q3

REPORT INFORMATION
  Report Type: Spontaneous
  Country: US (occurrence: US)
  Receive Date: 20210827
  Receipt Date: 20210827
  Transmission Date: 20211014
  Serious: Yes (Hospitalization, Other)
  Sender: FDA-Public Use
  Company Number: US-HIKMA PHARMACEUTICALS USA INC.-US-H14001-21-03768

PATIENT
  Age: 47 Year
  Sex: Male

DRUGS (6)
  1. MERCAPTOPURINE. [Suspect]
     Active Substance: MERCAPTOPURINE
     Indication: ACUTE PROMYELOCYTIC LEUKAEMIA
     Dosage: 90 MG/M2 WITH TOTAL OF 100 MG TWICE DAILY FOR 15 DAYS EVERY THREE MONTHS
     Route: 048
  2. METHOTREXATE. [Suspect]
     Active Substance: METHOTREXATE
     Indication: ACUTE PROMYELOCYTIC LEUKAEMIA
     Dosage: 15 MG/M2 WITH BSA OF 2.14 ROUND TO TOTAL OF 30 MG ONCE A WEEK FOR 15 DAYS EVERY THREE MONTHS
     Route: 048
  3. MERCAPTOPURINE. [Suspect]
     Active Substance: MERCAPTOPURINE
     Route: 048
  4. MERCAPTOPURINE. [Suspect]
     Active Substance: MERCAPTOPURINE
     Route: 048
  5. METHOTREXATE. [Suspect]
     Active Substance: METHOTREXATE
     Route: 048
  6. ALL?TRANS RETINOIC ACID [Concomitant]
     Active Substance: TRETINOIN
     Indication: ACUTE PROMYELOCYTIC LEUKAEMIA
     Dosage: 45 MG/M2 WITH TOTAL OF 50 MG TWICE DAILY FOR 15 DAYS EVERY THREE MONTHS
     Route: 048

REACTIONS (10)
  - Diarrhoea [Unknown]
  - Mucosal inflammation [Unknown]
  - Abdominal pain upper [Unknown]
  - Pyrexia [Unknown]
  - Rash [Unknown]
  - Febrile neutropenia [Unknown]
  - Pancytopenia [Recovered/Resolved]
  - Rectal haemorrhage [Unknown]
  - Toxicity to various agents [Unknown]
  - Abdominal pain lower [Unknown]
